FAERS Safety Report 18345084 (Version 1)
Quarter: 2020Q4

REPORT INFORMATION
  Report Type: Spontaneous
  Country: US (occurrence: US)
  Receive Date: 20201005
  Receipt Date: 20201005
  Transmission Date: 20210114
  Serious: No
  Sender: FDA-Public Use
  Company Number: US-ALLERGAN-2004356US

PATIENT
  Age: 58 Year
  Sex: Female
  Weight: 46.71 kg

DRUGS (4)
  1. LINZESS [Suspect]
     Active Substance: LINACLOTIDE
     Dosage: 72 ?G
     Route: 048
     Dates: start: 201908
  2. ATORVASTATIN [Concomitant]
     Active Substance: ATORVASTATIN
     Indication: BLOOD CHOLESTEROL
     Dosage: 10 MG
     Route: 048
  3. LINZESS [Suspect]
     Active Substance: LINACLOTIDE
     Indication: CONSTIPATION
     Dosage: 145 ?G
     Route: 048
  4. LEVOTHYROXINE. [Concomitant]
     Active Substance: LEVOTHYROXINE
     Indication: HYPOTHYROIDISM
     Dosage: 50 MG
     Route: 048

REACTIONS (5)
  - Fluid retention [Unknown]
  - Inappropriate schedule of product administration [Unknown]
  - Influenza [Recovered/Resolved]
  - Brain natriuretic peptide increased [Unknown]
  - Inability to afford medication [Unknown]

NARRATIVE: CASE EVENT DATE: 202002
